FAERS Safety Report 4358760-4 (Version None)
Quarter: 2004Q2

REPORT INFORMATION
  Report Type: 
  Country: None (occurrence: None)
  Receive Date: 20040517
  Receipt Date: 20040511
  Transmission Date: 20050107
  Serious: Yes (Hospitalization, Disabling)
  Sender: FDA-Public Use
  Company Number: 200414944GDDC

PATIENT
  Age: 51 Year
  Sex: Female

DRUGS (2)
  1. GAVISCON [Suspect]
     Indication: GASTROOESOPHAGEAL REFLUX DISEASE
     Dosage: DOSE: 1 TABLET AS REQUIRED
     Route: 048
     Dates: start: 19950101
  2. OMEPRAZOLE [Concomitant]
     Dosage: DOSE: UNK

REACTIONS (2)
  - CONDITION AGGRAVATED [None]
  - GASTROOESOPHAGEAL REFLUX DISEASE [None]
